FAERS Safety Report 4827295-4 (Version None)
Quarter: 2005Q4

REPORT INFORMATION
  Report Type: 
  Country: None (occurrence: None)
  Receive Date: 20051014
  Receipt Date: 20050830
  Transmission Date: 20060501
  Serious: No
  Sender: FDA-Public Use
  Company Number: 2005SP002570

PATIENT
  Age: 69 Year
  Sex: Male
  Weight: 86.1834 kg

DRUGS (10)
  1. LUNESTA [Suspect]
     Indication: INSOMNIA
     Dosage: 2 MG; HS; ORAL, 3 MG; HS; ORAL
     Route: 048
     Dates: start: 20050801, end: 20050101
  2. LUNESTA [Suspect]
     Indication: SLEEP APNOEA SYNDROME
     Dosage: 2 MG; HS; ORAL, 3 MG; HS; ORAL
     Route: 048
     Dates: start: 20050801, end: 20050101
  3. LUNESTA [Suspect]
     Indication: INSOMNIA
     Dosage: 2 MG; HS; ORAL, 3 MG; HS; ORAL
     Route: 048
     Dates: start: 20050101
  4. LUNESTA [Suspect]
     Indication: SLEEP APNOEA SYNDROME
     Dosage: 2 MG; HS; ORAL, 3 MG; HS; ORAL
     Route: 048
     Dates: start: 20050101
  5. TRAZODONE [Concomitant]
  6. NORVASC [Concomitant]
  7. ADVICOR [Concomitant]
  8. ALTACE [Concomitant]
  9. ACIPHEX [Concomitant]
  10. TRIAMTERENE [Concomitant]

REACTIONS (2)
  - DRUG INEFFECTIVE [None]
  - INSOMNIA [None]
